FAERS Safety Report 21409729 (Version 1)
Quarter: 2022Q4

REPORT INFORMATION
  Report Type: Other
  Country: AU (occurrence: AU)
  Receive Date: 20221005
  Receipt Date: 20221005
  Transmission Date: 20230113
  Serious: Yes (Other)
  Sender: FDA-Public Use
  Company Number: AU-CELLTRION INC.-2022AU015995

PATIENT

DRUGS (3)
  1. RITUXIMAB [Suspect]
     Active Substance: RITUXIMAB
     Indication: Product used for unknown indication
     Dosage: UNK
  2. FLUDARABINE PHOSPHATE [Suspect]
     Active Substance: FLUDARABINE PHOSPHATE
     Indication: Product used for unknown indication
     Dosage: UNK
  3. IBRUTINIB [Suspect]
     Active Substance: IBRUTINIB
     Indication: Product used for unknown indication
     Dosage: UNK

REACTIONS (8)
  - JC virus infection [Unknown]
  - Pneumonia aspiration [Unknown]
  - Progressive multifocal leukoencephalopathy [Unknown]
  - Ataxia [Unknown]
  - Dysarthria [Unknown]
  - Intention tremor [Unknown]
  - Speech disorder [Unknown]
  - Dysphagia [Unknown]
